FAERS Safety Report 16418676 (Version 1)
Quarter: 2019Q2

REPORT INFORMATION
  Report Type: Spontaneous
  Country: US (occurrence: US)
  Receive Date: 20190612
  Receipt Date: 20190612
  Transmission Date: 20190711
  Serious: No
  Sender: FDA-Public Use
  Company Number: US-009507513-1905USA009913

PATIENT
  Age: 58 Year
  Sex: Female
  Weight: 70.3 kg

DRUGS (25)
  1. BYSTOLIC [Concomitant]
     Active Substance: NEBIVOLOL HYDROCHLORIDE
     Dosage: 1 TABLET (5 MG) QD (DAILY)
     Route: 048
  2. ALBUTEROL. [Concomitant]
     Active Substance: ALBUTEROL
     Indication: DYSPNOEA
     Dosage: 3 MILLILITER (0.083%), Q8H AS NEEDED
     Route: 055
  3. CYMBALTA [Concomitant]
     Active Substance: DULOXETINE HYDROCHLORIDE
     Dosage: 1 CAPSULE (60 MG) QD (DAILY)
     Route: 048
  4. LYRICA [Concomitant]
     Active Substance: PREGABALIN
     Dosage: 1 CAPSULE (150 MG), BID (TWICE A DAY)
     Route: 048
  5. VENTOLIN HFA [Concomitant]
     Active Substance: ALBUTEROL SULFATE
     Dosage: 2 PUFFS, QID (4 TIMES A DAY)
     Route: 055
  6. ONDANSETRON [Concomitant]
     Active Substance: ONDANSETRON
     Dosage: 1 TABLET (4 MG), Q8H PRN
     Route: 048
  7. LISINOPRIL. [Concomitant]
     Active Substance: LISINOPRIL
     Dosage: 1 TABLET (20 MIG), QD (DAILY)
     Route: 048
  8. METFORMIN [Concomitant]
     Active Substance: METFORMIN HYDROCHLORIDE
     Dosage: 1 TABLET (1000 MG), BID (TWICE A DAY)
     Route: 048
  9. TRAMADOL HYDROCHLORIDE. [Concomitant]
     Active Substance: TRAMADOL HYDROCHLORIDE
     Dosage: 1 TABLET (50 MG), Q4H PRN
     Route: 048
  10. TRESIBA [Concomitant]
     Active Substance: INSULIN DEGLUDEC
     Dosage: 200 UNITS/ML, 46, HS
     Route: 058
  11. VENLAFAXINE HYDROCHLORIDE. [Concomitant]
     Active Substance: VENLAFAXINE HYDROCHLORIDE
     Dosage: 1 CAPSULE (150 MG), QD (DAILY) FOR 7 DAYS
     Route: 048
  12. SIVEXTRO [Suspect]
     Active Substance: TEDIZOLID PHOSPHATE
     Indication: CELLULITIS
  13. ANORO ELLIPTA [Concomitant]
     Active Substance: UMECLIDINIUM BROMIDE\VILANTEROL TRIFENATATE
     Dosage: 1 INHALATION (25 MG), QD (DAILY)
     Route: 055
  14. DEPAKOTE [Concomitant]
     Active Substance: DIVALPROEX SODIUM
     Dosage: 3 TABLETS (750 MG) BID (TWICE A DAY)
     Route: 048
  15. MONTELUKAST [Concomitant]
     Active Substance: MONTELUKAST SODIUM
     Dosage: 1 TABLET (10 MG), HS
     Route: 048
  16. MUPIROCIN. [Concomitant]
     Active Substance: MUPIROCIN
     Dosage: 1 TO THE AFFECTED AREA THREE TIMES PER DAY
     Route: 061
  17. TRICOR (ADENOSINE) [Concomitant]
     Active Substance: ADENOSINE
     Dosage: 1 TABLET (145 MG), QD (DAILY)
     Route: 048
  18. IMITREX [Concomitant]
     Active Substance: SUMATRIPTAN SUCCINATE
     Dosage: 1 TABLET (100 MG), ONCE PRN
     Route: 048
  19. VESICARE [Concomitant]
     Active Substance: SOLIFENACIN SUCCINATE
     Dosage: 1 TABLET (10 MG), QD (DAILY)
     Route: 048
  20. SIVEXTRO [Suspect]
     Active Substance: TEDIZOLID PHOSPHATE
     Indication: STAPHYLOCOCCAL INFECTION
     Dosage: 200 MILLIGRAM, QD
     Route: 048
     Dates: start: 20190510, end: 20190512
  21. BYDUREON [Concomitant]
     Active Substance: EXENATIDE
     Dosage: 1 INJECT WEEKLY
     Route: 058
  22. LIPITOR [Concomitant]
     Active Substance: ATORVASTATIN CALCIUM
     Dosage: 1 TABLET (40 MG), QD (DAILY)
     Route: 048
  23. MELOXICAM. [Concomitant]
     Active Substance: MELOXICAM
     Dosage: 1 TABLET (15 MIG), QD (DAILY)
     Route: 048
  24. FLONASE [Concomitant]
     Active Substance: FLUTICASONE PROPIONATE
     Dosage: 1 SPRAY (50 MG), BID (TWICE A DAY)
     Route: 045
  25. VENLAFAXINE HYDROCHLORIDE. [Concomitant]
     Active Substance: VENLAFAXINE HYDROCHLORIDE
     Dosage: 2 CAPSULES (300 MG), QD (DAILY)
     Route: 048

REACTIONS (5)
  - Rash erythematous [Recovered/Resolved]
  - Drug hypersensitivity [Unknown]
  - Dyspnoea [Unknown]
  - Rash generalised [Recovered/Resolved]
  - Pain [Unknown]

NARRATIVE: CASE EVENT DATE: 20190512
